FAERS Safety Report 7520863-0 (Version None)
Quarter: 2011Q2

REPORT INFORMATION
  Report Type: 
  Country: None (occurrence: None)
  Receive Date: 20110603
  Receipt Date: 20101109
  Transmission Date: 20111010
  Serious: Yes (Hospitalization)
  Sender: FDA-Public Use
  Company Number: US-BAYER-201027421NA

PATIENT
  Age: 19 Year
  Sex: Female
  Weight: 61.364 kg

DRUGS (4)
  1. YASMIN [Suspect]
     Indication: DYSMENORRHOEA
     Route: 048
     Dates: start: 20060401, end: 20070101
  2. CLINDAMYCIN [Concomitant]
     Indication: ACNE
     Route: 061
     Dates: start: 20061215
  3. IBUPROFEN [Concomitant]
  4. DOXYCYLINE HYCLATE [Concomitant]
     Indication: ACNE
     Route: 048
     Dates: start: 20061208

REACTIONS (6)
  - COUGH [None]
  - PULMONARY EMBOLISM [None]
  - CHEST PAIN [None]
  - HEADACHE [None]
  - DYSPNOEA [None]
  - COSTOCHONDRITIS [None]
